FAERS Safety Report 11683634 (Version 1)
Quarter: 2015Q4

REPORT INFORMATION
  Report Type: Spontaneous
  Country: US (occurrence: US)
  Receive Date: 20151029
  Receipt Date: 20151029
  Transmission Date: 20160304
  Serious: No
  Sender: FDA-Public Use
  Company Number: US-ROCHE-1476703

PATIENT
  Age: 72 Year
  Sex: Female

DRUGS (1)
  1. HERCEPTIN [Suspect]
     Active Substance: TRASTUZUMAB
     Indication: BREAST CANCER METASTATIC
     Dosage: 8 MG PER KG
     Route: 065
     Dates: start: 2014

REACTIONS (2)
  - Chills [Recovered/Resolved]
  - Pulmonary oedema [Recovered/Resolved]
